FAERS Safety Report 15436628 (Version 1)
Quarter: 2018Q3

REPORT INFORMATION
  Report Type: Spontaneous
  Country: US (occurrence: US)
  Receive Date: 20180927
  Receipt Date: 20180927
  Transmission Date: 20181010
  Serious: No
  Sender: FDA-Public Use
  Company Number: US-PFIZER INC-2018389633

PATIENT
  Sex: Female

DRUGS (2)
  1. LYRICA [Suspect]
     Active Substance: PREGABALIN
     Indication: SYSTEMIC LUPUS ERYTHEMATOSUS
     Dosage: 250 MG, DAILY (2 OF 100MG AT NIGHT AND 50MG DURING THE DAY)
  2. LYRICA [Suspect]
     Active Substance: PREGABALIN
     Indication: CUTANEOUS LUPUS ERYTHEMATOSUS

REACTIONS (8)
  - Pruritus [Unknown]
  - Product use in unapproved indication [Unknown]
  - Condition aggravated [Unknown]
  - Impaired work ability [Unknown]
  - Bone disorder [Unknown]
  - Dysstasia [Unknown]
  - Burning sensation [Unknown]
  - Fall [Unknown]
